FAERS Safety Report 11127996 (Version 2)
Quarter: 2015Q3

REPORT INFORMATION
  Report Type: Spontaneous
  Country: US (occurrence: US)
  Receive Date: 20150521
  Receipt Date: 20150714
  Transmission Date: 20151125
  Serious: Yes (Hospitalization, Other)
  Sender: FDA-Public Use
  Company Number: US-PFIZER INC-2015168426

PATIENT
  Age: 50 Year
  Sex: Female
  Weight: 56.69 kg

DRUGS (5)
  1. LYRICA [Suspect]
     Active Substance: PREGABALIN
     Indication: FIBROMYALGIA
     Dosage: 300 MG, 2X/DAY
     Route: 048
     Dates: start: 201302
  2. ATIVAN [Concomitant]
     Active Substance: LORAZEPAM
     Dosage: UNK
     Dates: start: 2009
  3. LYRICA [Suspect]
     Active Substance: PREGABALIN
     Indication: NERVE INJURY
     Dosage: 300 MG 2X5 DAILY
  4. LYRICA [Suspect]
     Active Substance: PREGABALIN
     Indication: NEURALGIA
  5. KEPPRA [Concomitant]
     Active Substance: LEVETIRACETAM
     Dosage: UNK
     Dates: start: 2011

REACTIONS (8)
  - Condition aggravated [Not Recovered/Not Resolved]
  - Seizure [Not Recovered/Not Resolved]
  - Gastric infection [Recovered/Resolved]
  - Headache [Unknown]
  - Shock [Not Recovered/Not Resolved]
  - Overdose [Unknown]
  - Back pain [Unknown]
  - Pain [Not Recovered/Not Resolved]
